FAERS Safety Report 16289915 (Version 1)
Quarter: 2019Q2

REPORT INFORMATION
  Report Type: Spontaneous
  Country: US (occurrence: US)
  Receive Date: 20190508
  Receipt Date: 20190508
  Transmission Date: 20190711
  Serious: No
  Sender: FDA-Public Use
  Company Number: None

PATIENT
  Age: 43 Year
  Sex: Female
  Weight: 95.85 kg

DRUGS (1)
  1. OXYBUTYNIN ER 10 MG [Suspect]
     Active Substance: OXYBUTYNIN CHLORIDE
     Indication: HYPERTONIC BLADDER
     Route: 048
     Dates: start: 20190402, end: 20190505

REACTIONS (3)
  - Back pain [None]
  - Musculoskeletal pain [None]
  - Abdominal pain [None]

NARRATIVE: CASE EVENT DATE: 20190424
